FAERS Safety Report 19417577 (Version 2)
Quarter: 2021Q2

REPORT INFORMATION
  Report Type: Spontaneous
  Country: SE (occurrence: SE)
  Receive Date: 20210615
  Receipt Date: 20210621
  Transmission Date: 20210717
  Serious: Yes (Other)
  Sender: FDA-Public Use
  Company Number: SE-TEVA-2021-SE-1921594

PATIENT
  Age: 72 Year
  Sex: Female

DRUGS (3)
  1. ENBREL [Suspect]
     Active Substance: ETANERCEPT
     Indication: RHEUMATOID ARTHRITIS
     Dosage: 50MG
     Route: 065
     Dates: start: 20180503, end: 20200915
  2. PREDNISOLON [Concomitant]
     Active Substance: PREDNISOLONE
     Dosage: 2.5MG
     Dates: start: 20091113
  3. METOTREXAT [Suspect]
     Active Substance: METHOTREXATE SODIUM
     Indication: RHEUMATOID ARTHRITIS
     Dosage: 15MG
     Route: 065
     Dates: start: 20091113

REACTIONS (1)
  - Uterine cancer [Recovering/Resolving]

NARRATIVE: CASE EVENT DATE: 20200901
